FAERS Safety Report 12198096 (Version 1)
Quarter: 2016Q1

REPORT INFORMATION
  Report Type: Spontaneous
  Country: US (occurrence: None)
  Receive Date: 20160321
  Receipt Date: 20160321
  Transmission Date: 20160526
  Serious: No
  Sender: FDA-Public Use
  Company Number: None

PATIENT
  Age: 25 Year
  Sex: Female
  Weight: 102.97 kg

DRUGS (5)
  1. LYZA (PROGESTIN-ONLY BIRTH CONTROL) [Concomitant]
  2. BIOTIN [Concomitant]
     Active Substance: BIOTIN
  3. OMEGA 3 [Concomitant]
     Active Substance: OMEGA-3 FATTY ACIDS
  4. FISH OIL [Concomitant]
     Active Substance: FISH OIL
  5. MONISTAT [Suspect]
     Active Substance: MICONAZOLE NITRATE
     Indication: FUNGAL INFECTION
     Dosage: 1 OVULE  ONCE VAGINAL
     Route: 067
     Dates: start: 20160317, end: 20160317

REACTIONS (2)
  - Application site pruritus [None]
  - Application site pain [None]

NARRATIVE: CASE EVENT DATE: 20160317
